FAERS Safety Report 18691175 (Version 1)
Quarter: 2021Q1

REPORT INFORMATION
  Report Type: Spontaneous
  Country: CN (occurrence: CN)
  Receive Date: 20210101
  Receipt Date: 20210101
  Transmission Date: 20210419
  Serious: Yes (Hospitalization, Disabling)
  Sender: FDA-Public Use
  Company Number: NVSC2020CN345046

PATIENT
  Age: 67 Year
  Sex: Female
  Weight: 49 kg

DRUGS (5)
  1. COMPOUND SODIUM CHLORIDE [Concomitant]
     Indication: OSTEOPOROSIS
     Dosage: 500 ML, BID  (IVGTT)
     Route: 041
     Dates: start: 20201217, end: 20201217
  2. SODIUM CHLORIDE. [Concomitant]
     Active Substance: SODIUM CHLORIDE
     Indication: OSTEOPOROSIS
     Dosage: 100 ML, QD  (IVGTT)
     Route: 041
     Dates: start: 20201217, end: 20201217
  3. ACLASTA [Suspect]
     Active Substance: ZOLEDRONIC ACID
     Indication: OSTEOPOROSIS
     Dosage: 5 MG, QD
     Route: 041
     Dates: start: 20201217, end: 20201217
  4. FLURBIPROFEN AXETIL [Concomitant]
     Active Substance: FLURBIPROFEN AXETIL
     Indication: PAIN PROPHYLAXIS
     Dosage: 50 MG, QD
     Route: 041
     Dates: start: 20201217, end: 20201217
  5. SODIUM CHLORIDE. [Concomitant]
     Active Substance: SODIUM CHLORIDE
     Dosage: 100 ML, QD (IVGTT)
     Route: 041
     Dates: start: 20201217, end: 20201217

REACTIONS (4)
  - Asthenia [Recovering/Resolving]
  - Pain [Recovering/Resolving]
  - Hypoaesthesia [Recovering/Resolving]
  - Nausea [Recovering/Resolving]

NARRATIVE: CASE EVENT DATE: 20201218
